FAERS Safety Report 6252749-6 (Version None)
Quarter: 2009Q3

REPORT INFORMATION
  Report Type: 
  Country: None (occurrence: None)
  Receive Date: 20090701
  Receipt Date: 20090624
  Transmission Date: 20100115
  Serious: Yes (Other)
  Sender: FDA-Public Use
  Company Number: AU-ASTRAZENECA-2009SE03311

PATIENT
  Age: 0 Day
  Sex: Female
  Weight: 3.2 kg

DRUGS (8)
  1. ZD5077, SEROQUEL [Suspect]
     Dates: start: 20090101
  2. ZD5077, SEROQUEL [Suspect]
  3. ZD5077, SEROQUEL [Suspect]
  4. ELEVIT [Concomitant]
     Indication: PROPHYLAXIS OF NEURAL TUBE DEFECT
     Dates: end: 20090601
  5. DIAZEPAM [Concomitant]
     Indication: ANXIETY
  6. DIAZEPAM [Concomitant]
  7. MIRTAZAPINE [Concomitant]
     Indication: ANTIDEPRESSANT THERAPY
     Dates: start: 20090201
  8. MIRTAZAPINE [Concomitant]

REACTIONS (1)
  - FOETAL DISTRESS SYNDROME [None]
